FAERS Safety Report 9071509 (Version 1)
Quarter: 2013Q1

REPORT INFORMATION
  Report Type: Report from Study
  Country: CA (occurrence: CA)
  Receive Date: 20130129
  Receipt Date: 20130129
  Transmission Date: 20140127
  Serious: Yes (Other)
  Sender: FDA-Public Use
  Company Number: CA-ROCHE-1180134

PATIENT
  Age: 0 None
  Sex: Male

DRUGS (1)
  1. PULMOZYME [Suspect]
     Indication: CYSTIC FIBROSIS
     Route: 065
     Dates: start: 20120515

REACTIONS (3)
  - Croup infectious [Recovering/Resolving]
  - Pneumonia [Recovering/Resolving]
  - Influenza [Recovering/Resolving]
